FAERS Safety Report 4578661-6 (Version None)
Quarter: 2005Q1

REPORT INFORMATION
  Report Type: 
  Country: None (occurrence: None)
  Receive Date: 20050209
  Receipt Date: 20050209
  Transmission Date: 20050727
  Serious: Yes (Other)
  Sender: FDA-Public Use
  Company Number: None

PATIENT
  Age: 42 Year
  Sex: Female
  Weight: 86.1834 kg

DRUGS (3)
  1. CYMBALTA [Suspect]
     Indication: DEPRESSION
     Dosage: 30 MG   ONE WEEK   INTRAVENOU
     Route: 042
     Dates: start: 20050120, end: 20050127
  2. CYMBALTA [Suspect]
     Indication: DEPRESSION
     Dosage: 60 MG   ONE WEEK   INTRAVENOU
     Route: 042
     Dates: start: 20050128, end: 20050204
  3. NATURAL VITAMIN/MINERAL SUPPLEMENTS [Concomitant]

REACTIONS (1)
  - CONSTIPATION [None]
